FAERS Safety Report 20009710 (Version 2)
Quarter: 2021Q4

REPORT INFORMATION
  Report Type: Spontaneous
  Country: US (occurrence: US)
  Receive Date: 20211029
  Receipt Date: 20211102
  Transmission Date: 20220303
  Serious: No
  Sender: FDA-Public Use
  Company Number: US-SANOFI-00824839

PATIENT
  Age: 74 Year
  Sex: Male

DRUGS (3)
  1. ENOXAPARIN SODIUM [Suspect]
     Active Substance: ENOXAPARIN SODIUM
     Indication: Neoplasm malignant
     Dosage: 100 MG, QD
     Route: 065
  2. ENOXAPARIN SODIUM [Suspect]
     Active Substance: ENOXAPARIN SODIUM
     Dosage: 120 MG
     Route: 065
  3. ENOXAPARIN SODIUM [Suspect]
     Active Substance: ENOXAPARIN SODIUM
     Dosage: 100 MG, QD
     Route: 065

REACTIONS (5)
  - Injection site pain [Unknown]
  - Injection site discomfort [Unknown]
  - Needle issue [Unknown]
  - Device difficult to use [Unknown]
  - Product use in unapproved indication [Unknown]
